FAERS Safety Report 8523472-X (Version None)
Quarter: 2012Q3

REPORT INFORMATION
  Report Type: 
  Country: None (occurrence: None)
  Receive Date: 20120720
  Receipt Date: 20120711
  Transmission Date: 20120928
  Serious: Yes (Other)
  Sender: FDA-Public Use
  Company Number: IT-BAYER-2012-068772

PATIENT
  Age: 49 Year
  Sex: Male

DRUGS (3)
  1. ANTIVIRALS FOR SYSTEMIC USE [Concomitant]
  2. NEXAVAR [Suspect]
     Indication: HEPATIC NEOPLASM MALIGNANT
     Dosage: DAILY DOSE 800 MG
  3. NEXAVAR [Suspect]
     Dosage: DAILY DOSE 400 MG

REACTIONS (2)
  - PALMAR-PLANTAR ERYTHRODYSAESTHESIA SYNDROME [None]
  - PORTAL VEIN THROMBOSIS [None]
